FAERS Safety Report 10301435 (Version 2)
Quarter: 2014Q3

REPORT INFORMATION
  Report Type: Report from Study
  Country: GB (occurrence: None)
  Receive Date: 20140708
  Receipt Date: 20140725
  Transmission Date: 20150326
  Serious: Yes (Life-Threatening, Hospitalization)
  Sender: FDA-Public Use
  Company Number: KAD201406-000708

PATIENT
  Age: 51 Year
  Sex: Male
  Weight: 94.8 kg

DRUGS (14)
  1. DIAZEPAM (DIAZEPAM) [Concomitant]
     Active Substance: DIAZEPAM
  2. OMEPRAZOLE (OMEPRAZOLE) [Concomitant]
     Active Substance: OMEPRAZOLE
  3. ACICLOVIR (ACICLOVIR) [Concomitant]
     Active Substance: ACYCLOVIR
  4. PLATELETS [Concomitant]
     Active Substance: HUMAN PLATELET, ALLOGENIC
  5. PARACETAMOL(PARACETAMOL) [Concomitant]
  6. TRUVADA (FTC+TDF) (EMTRICITABINE, TENOFOVIR DISOPROXIL FUMARATE) (EMTRICITABINE, TENOFOVIR DISOPROXIL FUMARATE) [Concomitant]
  7. PREGABALIN (PREGABALIN) [Concomitant]
     Active Substance: PREGABALIN
  8. ORLISTAT (ORLISTAT) [Concomitant]
  9. LACTULOSE (LACTULOSE) [Concomitant]
     Active Substance: LACTULOSE
  10. CRYOPRECIPITATE [Concomitant]
     Active Substance: ANTIHEMOPHILIC FACTOR HUMAN\FIBRINOGEN HUMAN\FACTOR XIII CONCENTRATE (HUMAN)\VON WILLEBRAND FACTOR HUMAN
  11. RIBAVIRIN (RIBAVIRIN) [Suspect]
     Active Substance: RIBAVIRIN
     Indication: HEPATITIS C
     Dosage: ONCE DAILY
     Route: 048
     Dates: start: 20130528, end: 20130614
  12. GS-7977 [Suspect]
     Active Substance: SOFOSBUVIR
     Indication: HEPATITIS C
     Dosage: ONCE DAILY
     Route: 048
     Dates: start: 20130528, end: 20130614
  13. IN: RALTEGRAVIR [Concomitant]
  14. RALTEGRAVIR (RALTEGRAVIR) [Concomitant]
     Active Substance: RALTEGRAVIR

REACTIONS (8)
  - Petechiae [None]
  - Blood blister [None]
  - Haemoglobin decreased [None]
  - Anti-platelet antibody positive [None]
  - Haematocrit decreased [None]
  - Immune thrombocytopenic purpura [None]
  - Cytomegalovirus test positive [None]
  - Parvovirus B19 test positive [None]

NARRATIVE: CASE EVENT DATE: 20130614
